FAERS Safety Report 12845578 (Version 1)
Quarter: 2016Q4

REPORT INFORMATION
  Report Type: Spontaneous
  Country: US (occurrence: US)
  Receive Date: 20161013
  Receipt Date: 20161013
  Transmission Date: 20170207
  Serious: No
  Sender: FDA-Public Use
  Company Number: US-JAZZ-2016-US-013547

PATIENT
  Sex: Female

DRUGS (37)
  1. CLARITIN [Concomitant]
     Active Substance: LORATADINE
  2. MIRAPEX [Concomitant]
     Active Substance: PRAMIPEXOLE DIHYDROCHLORIDE
  3. VITAMIN C TR [Concomitant]
  4. VITAMIN D [Concomitant]
     Active Substance: CHOLECALCIFEROL
  5. FLURANDRENOLIDE. [Concomitant]
     Active Substance: FLURANDRENOLIDE
  6. CYANOCOBALAMIN. [Concomitant]
     Active Substance: CYANOCOBALAMIN
  7. OMEPRAZOLE DR [Concomitant]
     Active Substance: OMEPRAZOLE
  8. BUTRANS [Concomitant]
     Active Substance: BUPRENORPHINE
  9. TOPAMAX [Concomitant]
     Active Substance: TOPIRAMATE
  10. TRAMADOL HCL [Concomitant]
     Active Substance: TRAMADOL HYDROCHLORIDE
  11. METHOCARBAMOL. [Concomitant]
     Active Substance: METHOCARBAMOL
  12. MULTIVITAMIN [Concomitant]
     Active Substance: VITAMINS
  13. NYSTATIN. [Concomitant]
     Active Substance: NYSTATIN
  14. IMITREX [Concomitant]
     Active Substance: SUMATRIPTAN SUCCINATE
  15. IRON [Concomitant]
     Active Substance: IRON
  16. SINGULAIR [Concomitant]
     Active Substance: MONTELUKAST SODIUM
  17. SYNTHROID [Concomitant]
     Active Substance: LEVOTHYROXINE SODIUM
  18. MELATONIN [Concomitant]
     Active Substance: MELATONIN
  19. BUPROPION HYDROCHLORIDE SR [Concomitant]
     Active Substance: BUPROPION HYDROCHLORIDE
  20. CELEBREX [Concomitant]
     Active Substance: CELECOXIB
  21. CEPHALEXIN. [Concomitant]
     Active Substance: CEPHALEXIN
  22. GABAPENTIN. [Concomitant]
     Active Substance: GABAPENTIN
  23. NUVIGIL [Concomitant]
     Active Substance: ARMODAFINIL
  24. PROVIGIL [Concomitant]
     Active Substance: MODAFINIL
  25. ZOFRAN [Concomitant]
     Active Substance: ONDANSETRON HYDROCHLORIDE
  26. KETOCONAZOLE. [Concomitant]
     Active Substance: KETOCONAZOLE
  27. DOCUSATE SODIUM. [Concomitant]
     Active Substance: DOCUSATE SODIUM
  28. XYREM [Suspect]
     Active Substance: SODIUM OXYBATE
     Indication: NARCOLEPSY
     Dosage: 1.5 G, BID
     Route: 048
     Dates: start: 201510, end: 201511
  29. AUGMENTIN [Concomitant]
     Active Substance: AMOXICILLIN\CLAVULANATE POTASSIUM
  30. PRILOSEC [Concomitant]
     Active Substance: OMEPRAZOLE MAGNESIUM
  31. PROZAC [Concomitant]
     Active Substance: FLUOXETINE HYDROCHLORIDE
  32. XYREM [Suspect]
     Active Substance: SODIUM OXYBATE
     Dosage: DOSE ADJUSTMENTS
     Route: 048
     Dates: start: 201511, end: 201602
  33. XYREM [Suspect]
     Active Substance: SODIUM OXYBATE
     Dosage: 4.5 G, BID
     Route: 048
     Dates: start: 201602
  34. ASPIRIN. [Concomitant]
     Active Substance: ASPIRIN
  35. LORAZEPAM. [Concomitant]
     Active Substance: LORAZEPAM
  36. FOLIC ACID. [Concomitant]
     Active Substance: FOLIC ACID
  37. FLONASE [Concomitant]
     Active Substance: FLUTICASONE PROPIONATE

REACTIONS (7)
  - Fluid retention [Unknown]
  - Fungal infection [Unknown]
  - Hypertension [Recovered/Resolved]
  - Peripheral swelling [Recovering/Resolving]
  - Pre-existing condition improved [Unknown]
  - Therapeutic response unexpected [Unknown]
  - Nausea [Unknown]

NARRATIVE: CASE EVENT DATE: 2015
